FAERS Safety Report 7607481-0 (Version None)
Quarter: 2011Q3

REPORT INFORMATION
  Report Type: 
  Country: None (occurrence: None)
  Receive Date: 20110713
  Receipt Date: 20110628
  Transmission Date: 20111222
  Serious: Yes (Life-Threatening, Hospitalization, Other)
  Sender: FDA-Public Use
  Company Number: FR-BAYER-2011-057208

PATIENT
  Sex: Female

DRUGS (3)
  1. ASPIRIN [Suspect]
     Indication: ACUTE CORONARY SYNDROME
     Dosage: DAILY DOSE 75 MG
  2. CLOPIDOGREL [Suspect]
     Indication: ACUTE CORONARY SYNDROME
     Dosage: DAILY DOSE 75 MG
  3. FONDAPARINUX SODIUM [Suspect]
     Indication: ACUTE CORONARY SYNDROME
     Dosage: DAILY DOSE 2.5 MG

REACTIONS (3)
  - HAEMOPTYSIS [None]
  - THROMBOCYTOPENIA [None]
  - SHOCK HAEMORRHAGIC [None]
